FAERS Safety Report 4801897-3 (Version None)
Quarter: 2005Q4

REPORT INFORMATION
  Report Type: 
  Country: None (occurrence: None)
  Receive Date: 20051014
  Receipt Date: 20051014
  Transmission Date: 20060501
  Serious: Yes (Life-Threatening, Hospitalization)
  Sender: FDA-Public Use
  Company Number: None

PATIENT
  Age: 51 Year
  Sex: Male
  Weight: 77.6 kg

DRUGS (10)
  1. XIGRIS [Suspect]
     Indication: SYSTEMIC INFLAMMATORY RESPONSE SYNDROME
     Dosage: 24MCG/KG/HR CONTINUOUS FOR 96HR IV DRIP
     Route: 041
     Dates: start: 20050802, end: 20050806
  2. DOBUTAMINE HCL [Concomitant]
  3. VASOPRESSIN [Concomitant]
  4. NOREPINEPHRINE [Concomitant]
  5. PANTOPRAZOLE [Concomitant]
  6. PRIMAXIN [Concomitant]
  7. METRONIDAZOLE [Concomitant]
  8. FLUCONAZOLE [Concomitant]
  9. SODIUM BICARBONATE [Concomitant]
  10. ALPRAZOLAM [Concomitant]

REACTIONS (6)
  - CEREBRAL HAEMORRHAGE [None]
  - CULTURE STOOL POSITIVE [None]
  - ENTEROCOCCAL INFECTION [None]
  - RENAL FAILURE [None]
  - RESPIRATORY FAILURE [None]
  - SHOCK [None]
